FAERS Safety Report 13241969 (Version 4)
Quarter: 2017Q1

REPORT INFORMATION
  Report Type: Spontaneous
  Country: FR (occurrence: FR)
  Receive Date: 20170217
  Receipt Date: 20170316
  Transmission Date: 20170428
  Serious: Yes (Other)
  Sender: FDA-Public Use
  Company Number: FR-009507513-1702FRA007424

PATIENT
  Age: 44 Year
  Sex: Male

DRUGS (4)
  1. BLEOMYCIN [Concomitant]
     Active Substance: BLEOMYCIN SULFATE
     Indication: TESTICULAR NEOPLASM
     Dosage: 25 MG, CYCLICAL
     Route: 042
     Dates: start: 20161025, end: 20170112
  2. BLEOMYCIN [Concomitant]
     Active Substance: BLEOMYCIN SULFATE
     Dosage: 25 MG, CYCLICAL
     Route: 042
     Dates: start: 20170117
  3. IFOSFAMIDE. [Interacting]
     Active Substance: IFOSFAMIDE
     Indication: TESTICULAR NEOPLASM
     Dosage: 4080 MG, CYCLICAL (STRENGHT: 40MG/ML)
     Route: 042
     Dates: start: 20170109, end: 20170111
  4. EMEND [Suspect]
     Active Substance: APREPITANT
     Indication: PREMEDICATION
     Dosage: 1 DF, CYCLICAL
     Route: 048
     Dates: start: 20170109, end: 20170109

REACTIONS (4)
  - Somnolence [Recovered/Resolved]
  - Diarrhoea [Recovered/Resolved]
  - Influenza [Recovered/Resolved]
  - Confusional state [Recovered/Resolved]

NARRATIVE: CASE EVENT DATE: 20170110
